FAERS Safety Report 6529747-8 (Version None)
Quarter: 2009Q4

REPORT INFORMATION
  Report Type: 
  Country: None (occurrence: None)
  Receive Date: 20091231
  Receipt Date: 20091214
  Transmission Date: 20100525
  Serious: Yes (Hospitalization)
  Sender: FDA-Public Use
  Company Number: 2009AL007863

PATIENT
  Age: 84 Year
  Sex: Female

DRUGS (2)
  1. PAREGORIC LIQUID USP [Suspect]
     Indication: HERPES ZOSTER
     Dosage: 10 MG;BID;PO
     Route: 048
     Dates: start: 20080808, end: 20080811
  2. GABAPENTIN [Suspect]
     Indication: DRUG USE FOR UNKNOWN INDICATION
     Dosage: 300 MG; PO
     Route: 048
     Dates: start: 20080811, end: 20080811

REACTIONS (5)
  - DYSTONIA [None]
  - MYOCLONUS [None]
  - RENAL FAILURE ACUTE [None]
  - RENAL FAILURE CHRONIC [None]
  - SOMNOLENCE [None]
